FAERS Safety Report 4987524-3 (Version None)
Quarter: 2006Q2

REPORT INFORMATION
  Report Type: 
  Country: None (occurrence: None)
  Receive Date: 20060427
  Receipt Date: 20060427
  Transmission Date: 20061013
  Serious: Yes (Other)
  Sender: FDA-Public Use
  Company Number: None

PATIENT
  Age: 54 Year
  Sex: Female
  Weight: 58.0604 kg

DRUGS (2)
  1. TEQUIN [Suspect]
     Indication: EAR INFECTION
     Dosage: 400 MG TAB  1 DAILY ORAL
     Route: 048
     Dates: start: 20060404, end: 20060409
  2. METHYLPREDNISONE [Suspect]
     Dosage: 4 MG  6-5-4-3-2-1  ORAL
     Route: 048
     Dates: start: 20060405, end: 20060410

REACTIONS (2)
  - BLOOD PRESSURE INCREASED [None]
  - NEURALGIA [None]
